FAERS Safety Report 11394986 (Version 2)
Quarter: 2015Q3

REPORT INFORMATION
  Report Type: Spontaneous
  Country: US (occurrence: US)
  Receive Date: 20150819
  Receipt Date: 20150916
  Transmission Date: 20151125
  Serious: No
  Sender: FDA-Public Use
  Company Number: US-PFIZER INC-2015261595

PATIENT
  Age: 69 Year
  Sex: Female
  Weight: 86 kg

DRUGS (17)
  1. TRIAM/HCTZ [Concomitant]
     Dosage: 1 DF, DAILY (TRIAMTERENE: 75MG; HYDROCHLOROTHIAZIDE: 50MG)
     Route: 048
  2. SUTENT [Suspect]
     Active Substance: SUNITINIB MALATE
     Indication: RENAL CANCER METASTATIC
     Dosage: 50 MG, DAILY
     Dates: start: 20150722, end: 20150807
  3. MEGAKRILL [Concomitant]
     Dosage: 1 DF, DAILY (300MG-90MG)
     Route: 048
  4. PRAVASTATIN SODIUM. [Concomitant]
     Active Substance: PRAVASTATIN SODIUM
     Dosage: 40 MG, UNK (QHS)
     Route: 048
  5. FUROSEMIDE. [Concomitant]
     Active Substance: FUROSEMIDE
     Dosage: 20 MG, UNK
     Route: 048
  6. LOSARTAN POTASSIUM. [Concomitant]
     Active Substance: LOSARTAN POTASSIUM
     Dosage: 100 MG, 1X/DAY
     Route: 048
  7. CALCIUM 600 + VITAMIN D [Concomitant]
     Dosage: 1 DF, DAILY (CALCIUM CARBONATE:600MG; VITAMIN D3: 500MG)
     Route: 048
  8. WARFARIN [Concomitant]
     Active Substance: WARFARIN
     Dosage: UNK
  9. OMEGA 3-6-9 COMPLEX [Concomitant]
     Dosage: 1 DF, DAILY (400-400 MG)
     Route: 048
  10. VITAMIN B COMPLEX [Concomitant]
     Active Substance: CYANOCOBALAMIN\DEXPANTHENOL\NIACINAMIDE\PYRIDOXINE HYDROCHLORIDE\RIBOFLAVIN 5^-PHOSPHATE SODIUM\THIAMINE HYDROCHLORIDE\VITAMIN B COMPLEX
     Dosage: 1 DF, DAILY
     Route: 048
  11. POT. CHLORIDE [Concomitant]
     Dosage: UNK, DAILY (SUSTAINED ACTION TAKE 0.5 )
     Route: 048
  12. VITAMIN C [Concomitant]
     Active Substance: ASCORBIC ACID
     Dosage: 500 MG, DAILY
     Route: 048
  13. WARFARIN SODIUM. [Concomitant]
     Active Substance: WARFARIN SODIUM
     Dosage: 7.5 MG, 1X/DAY
     Route: 048
  14. PRAVASTATIN [Concomitant]
     Active Substance: PRAVASTATIN\PRAVASTATIN SODIUM
     Dosage: UNK
  15. VITAMIN D3 [Concomitant]
     Active Substance: CHOLECALCIFEROL
     Dosage: 400 IU, DAILY
     Route: 048
  16. LOSARTAN. [Concomitant]
     Active Substance: LOSARTAN
     Dosage: UNK
  17. COZAAR [Concomitant]
     Active Substance: LOSARTAN POTASSIUM
     Dosage: UNK

REACTIONS (7)
  - Renal cancer metastatic [Unknown]
  - Vomiting [Unknown]
  - Dizziness [Unknown]
  - Abdominal discomfort [Unknown]
  - Disease progression [Unknown]
  - Blood sodium decreased [Unknown]
  - Nausea [Unknown]
